FAERS Safety Report 10449453 (Version 1)
Quarter: 2014Q3

REPORT INFORMATION
  Report Type: Spontaneous
  Country: JP (occurrence: JP)
  Receive Date: 20140912
  Receipt Date: 20140912
  Transmission Date: 20150326
  Serious: Yes (Other)
  Sender: FDA-Public Use
  Company Number: PHHY2005JP008070

PATIENT
  Age: 34 Year
  Sex: Male

DRUGS (1)
  1. GLIVEC [Suspect]
     Active Substance: IMATINIB MESYLATE
     Indication: CHRONIC MYELOID LEUKAEMIA
     Dosage: 400 MG/DAY

REACTIONS (5)
  - Haemoglobin decreased [Unknown]
  - Hypercreatininaemia [Unknown]
  - Hyperuricaemia [Unknown]
  - Disseminated intravascular coagulation [Unknown]
  - Nausea [Unknown]
